FAERS Safety Report 6427755-9 (Version None)
Quarter: 2009Q4

REPORT INFORMATION
  Report Type: 
  Country: None (occurrence: None)
  Receive Date: 20091029
  Receipt Date: 20091013
  Transmission Date: 20100525
  Serious: Yes (Hospitalization, Other)
  Sender: FDA-Public Use
  Company Number: JPI-P-008836

PATIENT
  Age: 29 Year
  Sex: Male
  Weight: 139.2543 kg

DRUGS (13)
  1. XYREM [Suspect]
     Indication: CATAPLEXY
     Dosage: SEE IMAGE
     Route: 048
     Dates: start: 20070101, end: 20071107
  2. XYREM [Suspect]
     Indication: CATAPLEXY
     Dosage: SEE IMAGE
     Route: 048
     Dates: start: 20071108, end: 20090121
  3. XYREM [Suspect]
     Indication: CATAPLEXY
     Dosage: SEE IMAGE
     Route: 048
     Dates: start: 20070802
  4. XYREM [Suspect]
     Indication: CATAPLEXY
     Dosage: SEE IMAGE
     Route: 048
     Dates: start: 20080122
  5. ROSUVASTATIN [Concomitant]
  6. LEVOTHYROXINE SODIUM [Concomitant]
  7. CARVEDILOL [Concomitant]
  8. VENLAFAXINE [Concomitant]
  9. ROPINIROLE HYDROCHLORIDE [Concomitant]
  10. AMPHETAMINE AND DEXTROAMPHETAMINE SALTS [Concomitant]
  11. ARMODAFINIL [Concomitant]
  12. TOPIRAMATE [Concomitant]
  13. PREGABALIN [Concomitant]

REACTIONS (7)
  - BACK PAIN [None]
  - DISEASE PROGRESSION [None]
  - INCORRECT DOSE ADMINISTERED [None]
  - INTERVERTEBRAL DISC PROTRUSION [None]
  - SLEEP-RELATED EATING DISORDER [None]
  - SOMNAMBULISM [None]
  - WEIGHT DECREASED [None]
